FAERS Safety Report 23084689 (Version 1)
Quarter: 2023Q4

REPORT INFORMATION
  Report Type: Report from Study
  Country: GB (occurrence: GB)
  Receive Date: 20231019
  Receipt Date: 20231019
  Transmission Date: 20240110
  Serious: Yes (Hospitalization)
  Sender: FDA-Public Use
  Company Number: GB-PFIZER INC-PV202300168183

PATIENT

DRUGS (6)
  1. CRIZOTINIB [Suspect]
     Active Substance: CRIZOTINIB
     Dosage: 250 MG, 2X/DAY (136 CURRENT CYCLE)
     Route: 048
     Dates: start: 20151217, end: 20231007
  2. BUMETANIDE [Concomitant]
     Active Substance: BUMETANIDE
     Indication: Oedema
     Dosage: 1 MG T.D
     Route: 048
     Dates: start: 20230404
  3. CETIRIZINE [Concomitant]
     Active Substance: CETIRIZINE HYDROCHLORIDE
     Indication: Pruritus
     Dosage: 10 DF T.D
     Route: 048
     Dates: start: 20230622
  4. CALCIUM CARBONATE [Concomitant]
     Active Substance: CALCIUM CARBONATE
     Indication: Mineral supplementation
     Dosage: 1 DF T.D
     Route: 048
     Dates: start: 202202
  5. NAPROXEN [Concomitant]
     Active Substance: NAPROXEN
     Indication: Back pain
     Dosage: 500 MG
     Route: 048
     Dates: start: 202209
  6. CHOLECALCIFEROL [Concomitant]
     Active Substance: CHOLECALCIFEROL
     Indication: Vitamin D deficiency
     Dosage: 400 UNIT IN D.
     Route: 048
     Dates: start: 20191218

REACTIONS (5)
  - Hypoalbuminaemia [Unknown]
  - Oedema genital [Unknown]
  - Dyspnoea [Unknown]
  - Non-cardiac chest pain [Unknown]
  - Oedema peripheral [Not Recovered/Not Resolved]

NARRATIVE: CASE EVENT DATE: 20231004
